FAERS Safety Report 14732564 (Version 8)
Quarter: 2018Q3

REPORT INFORMATION
  Report Type: Report from Study
  Country: US (occurrence: US)
  Receive Date: 20180409
  Receipt Date: 20180713
  Transmission Date: 20181010
  Serious: Yes (Other)
  Sender: FDA-Public Use
  Company Number: US-GILEAD-2018-0324756

PATIENT
  Age: 50 Year
  Sex: Female

DRUGS (4)
  1. ADEMPAS [Concomitant]
     Active Substance: RIOCIGUAT
     Dosage: 1 MG, UNK
  2. ADCIRCA [Concomitant]
     Active Substance: TADALAFIL
  3. AMBRISENTAN [Suspect]
     Active Substance: AMBRISENTAN
     Indication: PULMONARY HYPERTENSION
     Dosage: 10 MG, QD
     Route: 065
     Dates: start: 20131107
  4. ADEMPAS [Concomitant]
     Active Substance: RIOCIGUAT
     Dosage: 1.5 MG, UNK

REACTIONS (13)
  - Abdominal distension [Unknown]
  - Peripheral swelling [Unknown]
  - Diarrhoea [Not Recovered/Not Resolved]
  - Myalgia [Unknown]
  - Dizziness [Unknown]
  - Dizziness [Recovered/Resolved]
  - Rectal haemorrhage [Unknown]
  - Chest pain [Unknown]
  - Feeling abnormal [Unknown]
  - Nasal congestion [Unknown]
  - Nephrolithiasis [Recovered/Resolved]
  - Diarrhoea haemorrhagic [Recovered/Resolved]
  - Faeces soft [Unknown]
